FAERS Safety Report 12317002 (Version 1)
Quarter: 2016Q2

REPORT INFORMATION
  Report Type: Spontaneous
  Country: DE (occurrence: DE)
  Receive Date: 20160429
  Receipt Date: 20160429
  Transmission Date: 20160815
  Serious: Yes (Other)
  Sender: FDA-Public Use
  Company Number: DE-DRREDDYS-GER/GER/16/0079087

PATIENT
  Age: 1 Day
  Sex: Female
  Weight: 1.82 kg

DRUGS (8)
  1. METFORMIN [Concomitant]
     Active Substance: METFORMIN HYDROCHLORIDE
     Indication: POLYCYSTIC OVARIES
     Route: 064
  2. SERTRALINE [Suspect]
     Active Substance: SERTRALINE HYDROCHLORIDE
     Indication: DEPRESSION
     Route: 064
     Dates: start: 20150210, end: 20151013
  3. ASS 100 [Concomitant]
     Active Substance: ASPIRIN
     Indication: FACTOR V LEIDEN MUTATION
     Route: 064
     Dates: start: 20150318, end: 20151013
  4. CABERGOLIN [Concomitant]
     Indication: PROLACTINOMA
     Route: 064
  5. ERYTHROMYCIN. [Concomitant]
     Active Substance: ERYTHROMYCIN
     Indication: CHLAMYDIAL INFECTION
     Route: 064
  6. L-THYROXIN 150 [Concomitant]
     Indication: HYPOTHYROIDISM
     Route: 064
     Dates: start: 20150210, end: 20151013
  7. FRAGMIN [Concomitant]
     Active Substance: DALTEPARIN SODIUM
     Indication: FACTOR V LEIDEN MUTATION
     Route: 064
     Dates: start: 20150314, end: 20151013
  8. FEMIBION SCHWANGERSCHAFT 1 [Concomitant]
     Indication: PROPHYLAXIS OF NEURAL TUBE DEFECT
     Route: 064
     Dates: start: 20150210, end: 20151013

REACTIONS (6)
  - Restlessness [Recovered/Resolved]
  - Infantile haemangioma [Not Recovered/Not Resolved]
  - Small for dates baby [Not Recovered/Not Resolved]
  - Temperature regulation disorder [Recovered/Resolved]
  - Selective eating disorder [Recovered/Resolved]
  - Foetal exposure during pregnancy [Unknown]

NARRATIVE: CASE EVENT DATE: 20151013
